FAERS Safety Report 9460809 (Version 3)
Quarter: 2014Q1

REPORT INFORMATION
  Report Type: Spontaneous
  Country: US (occurrence: US)
  Receive Date: 20130815
  Receipt Date: 20140116
  Transmission Date: 20141002
  Serious: Yes (Hospitalization)
  Sender: FDA-Public Use
  Company Number: US-B.I. PHARMACEUTICALS,INC./RIDGEFIELD-2013-BI-23201BP

PATIENT
  Age: 67 Year
  Sex: Female
  Weight: 65.77 kg

DRUGS (20)
  1. PRADAXA [Suspect]
     Indication: ATRIAL FIBRILLATION
     Dosage: 300 MG
     Dates: start: 20120507, end: 20120904
  2. AMBIEN [Concomitant]
     Dosage: 10 MG
  3. MIRALAX [Concomitant]
     Indication: CONSTIPATION
  4. POTASSIUM CHLORIDE [Concomitant]
     Dosage: 20 MEQ
  5. LYRICA [Concomitant]
     Dosage: 300 MG
  6. METFORMIN [Concomitant]
     Dosage: 2000 MG
  7. ZOCOR [Concomitant]
     Dosage: 80 MG
  8. AMIODARONE [Concomitant]
     Dosage: 200 MG
  9. LANTUS [Concomitant]
  10. PRAVASTATIN [Concomitant]
     Dosage: 40 MG
  11. MAGNESIUM OXIDE [Concomitant]
     Indication: DIABETES MELLITUS
     Dosage: 400 MG
  12. NOVOLOG FLEXPEN [Concomitant]
  13. VENTOLIN [Concomitant]
     Dosage: 8 PUF
  14. METOLAZONE [Concomitant]
     Dosage: 2.5 MG
  15. SPIRIVA HANDIHALER [Concomitant]
     Dosage: 18 MCG
  16. METHADONE [Concomitant]
     Dosage: 30 MG
  17. METOPROLOL SUCCINATE [Concomitant]
     Dosage: 50 MG
  18. DEMADEX [Concomitant]
     Dosage: 20 MG
  19. ALBUTEROL SULFATE [Concomitant]
  20. ASPIRIN [Concomitant]
     Dosage: 81 MG

REACTIONS (4)
  - Gastrointestinal haemorrhage [Unknown]
  - Anaemia [Unknown]
  - Dysphagia [Unknown]
  - Dizziness [Unknown]
